FAERS Safety Report 26049282 (Version 2)
Quarter: 2025Q4

REPORT INFORMATION
  Report Type: Report from Study
  Country: US (occurrence: US)
  Receive Date: 20251115
  Receipt Date: 20251228
  Transmission Date: 20260117
  Serious: Yes (Hospitalization, Other)
  Sender: ABBVIE
  Company Number: US-ABBVIE-6543740

PATIENT
  Age: 67 Year
  Sex: Female

DRUGS (1)
  1. CREON [Suspect]
     Active Substance: PANCRELIPASE AMYLASE\PANCRELIPASE LIPASE\PANCRELIPASE PROTEASE
     Indication: Product used for unknown indication
     Dosage: 36000 LIPASE UNITS
     Route: 048
     Dates: start: 20250813

REACTIONS (2)
  - Haematological infection [Recovered/Resolved]
  - Chemotherapy [Unknown]

NARRATIVE: CASE EVENT DATE: 20250101
